FAERS Safety Report 13780992 (Version 1)
Quarter: 2017Q3

REPORT INFORMATION
  Report Type: Spontaneous
  Country: US (occurrence: US)
  Receive Date: 20170721
  Receipt Date: 20170721
  Transmission Date: 20171127
  Serious: Yes (Hospitalization)
  Sender: FDA-Public Use
  Company Number: None

PATIENT
  Age: 47 Year
  Sex: Female
  Weight: 67.19 kg

DRUGS (9)
  1. LACTULOSE. [Concomitant]
     Active Substance: LACTULOSE
  2. GABAPENTIN. [Concomitant]
     Active Substance: GABAPENTIN
  3. DEXAMETHASONE. [Concomitant]
     Active Substance: DEXAMETHASONE
  4. CHLORHEXIDINE MOUTHWASH [Concomitant]
     Active Substance: CHLORHEXIDINE
  5. NERATINIB [Suspect]
     Active Substance: NERATINIB
     Indication: BREAST CANCER METASTATIC
     Route: 048
     Dates: start: 20170706, end: 20170715
  6. ONDANSETRON [Concomitant]
     Active Substance: ONDANSETRON
  7. LISINOPRIL. [Concomitant]
     Active Substance: LISINOPRIL
  8. PANTOPRAZOLE [Concomitant]
     Active Substance: PANTOPRAZOLE
  9. ACETAMINOPHEN. [Concomitant]
     Active Substance: ACETAMINOPHEN

REACTIONS (3)
  - Hydrocephalus [None]
  - Headache [None]
  - Disease progression [None]

NARRATIVE: CASE EVENT DATE: 20170715
